FAERS Safety Report 6220848-0 (Version None)
Quarter: 2009Q2

REPORT INFORMATION
  Report Type: 
  Country: None (occurrence: None)
  Receive Date: 20090610
  Receipt Date: 20090529
  Transmission Date: 20091009
  Serious: Yes (Death)
  Sender: FDA-Public Use
  Company Number: US-PFIZER INC-2009215434

PATIENT
  Sex: Female
  Weight: 47.9 kg

DRUGS (1)
  1. VFEND [Suspect]

REACTIONS (1)
  - DEATH [None]
